FAERS Safety Report 11587828 (Version 1)
Quarter: 2015Q4

REPORT INFORMATION
  Report Type: Report from Study
  Country: US (occurrence: US)
  Receive Date: 20151001
  Receipt Date: 20151001
  Transmission Date: 20160304
  Serious: Yes (Other)
  Sender: FDA-Public Use
  Company Number: US-GILEAD-2015-0173615

PATIENT
  Age: 86 Year
  Sex: Male

DRUGS (1)
  1. RANOLAZINE [Suspect]
     Active Substance: RANOLAZINE
     Indication: ANGINA PECTORIS
     Dosage: 1000 MG, UNK
     Route: 048

REACTIONS (12)
  - Atrial flutter [Unknown]
  - Balance disorder [Unknown]
  - Cardiac failure congestive [Unknown]
  - Arteriosclerosis coronary artery [Unknown]
  - Hypertension [Unknown]
  - Dizziness [Unknown]
  - Bradycardia [Unknown]
  - Atrioventricular block first degree [Unknown]
  - Chest discomfort [Unknown]
  - Presyncope [Unknown]
  - Fatigue [Unknown]
  - Fall [Unknown]
